FAERS Safety Report 14878290 (Version 1)
Quarter: 2018Q2

REPORT INFORMATION
  Report Type: Spontaneous
  Country: US (occurrence: US)
  Receive Date: 20180511
  Receipt Date: 20180511
  Transmission Date: 20180711
  Serious: Yes (Hospitalization)
  Sender: FDA-Public Use
  Company Number: US-BEH-2018090414

PATIENT
  Sex: Female
  Weight: 108.84 kg

DRUGS (13)
  1. HIZENTRA [Suspect]
     Active Substance: HUMAN IMMUNOGLOBULIN G
     Indication: IMMUNODEFICIENCY COMMON VARIABLE
     Dosage: 20 G, QOW
     Route: 058
     Dates: start: 20101103
  2. EPIPEN [Concomitant]
     Active Substance: EPINEPHRINE
  3. ATENOLOL. [Concomitant]
     Active Substance: ATENOLOL
  4. PHENTERMINE. [Concomitant]
     Active Substance: PHENTERMINE
  5. XANAX [Concomitant]
     Active Substance: ALPRAZOLAM
  6. OPANA [Concomitant]
     Active Substance: OXYMORPHONE HYDROCHLORIDE
  7. PROZAC [Concomitant]
     Active Substance: FLUOXETINE HYDROCHLORIDE
  8. ZANAFLEX [Concomitant]
     Active Substance: TIZANIDINE HYDROCHLORIDE
  9. TEGRETOL [Concomitant]
     Active Substance: CARBAMAZEPINE
  10. HIZENTRA [Suspect]
     Active Substance: HUMAN IMMUNOGLOBULIN G
     Dosage: UNK
     Route: 058
  11. ABILIFY [Concomitant]
     Active Substance: ARIPIPRAZOLE
  12. ADDERALL [Concomitant]
     Active Substance: AMPHETAMINE ASPARTATE\AMPHETAMINE SULFATE\DEXTROAMPHETAMINE SACCHARATE\DEXTROAMPHETAMINE SULFATE
  13. NEURONTIN [Concomitant]
     Active Substance: GABAPENTIN

REACTIONS (1)
  - Gastrectomy [Unknown]
